FAERS Safety Report 6113735-X (Version None)
Quarter: 2009Q1

REPORT INFORMATION
  Report Type: 
  Country: None (occurrence: None)
  Receive Date: 20090312
  Receipt Date: 20090303
  Transmission Date: 20090719
  Serious: Yes (Other)
  Sender: FDA-Public Use
  Company Number: PHEH2008US09023

PATIENT
  Sex: Female

DRUGS (8)
  1. RECLAST [Suspect]
     Indication: OSTEOPOROSIS
     Dosage: UNK
     Dates: start: 20070901
  2. BONIVA [Concomitant]
     Dosage: 150 MG, QMO
  3. FOSAMAX [Concomitant]
     Dosage: 70 UNK, QW
  4. MAXZIDE [Concomitant]
  5. PREVACID [Concomitant]
  6. TOPROL-XL [Concomitant]
  7. ASPIRIN [Concomitant]
  8. LOTREL [Concomitant]
     Dosage: UNK
     Dates: start: 20080101

REACTIONS (2)
  - OSTEONECROSIS [None]
  - TOOTH DISORDER [None]
